FAERS Safety Report 23586870 (Version 1)
Quarter: 2024Q1

REPORT INFORMATION
  Report Type: Spontaneous
  Country: US (occurrence: None)
  Receive Date: 20240301
  Receipt Date: 20240301
  Transmission Date: 20240410
  Serious: Yes (Hospitalization, Other)
  Sender: FDA-Public Use
  Company Number: US-ROCHE-3513042

PATIENT
  Sex: Female

DRUGS (3)
  1. PERJETA [Suspect]
     Active Substance: PERTUZUMAB
     Indication: Breast cancer metastatic
     Route: 042
     Dates: start: 202106
  2. HERCEPTIN [Suspect]
     Active Substance: TRASTUZUMAB
     Indication: Breast cancer metastatic
     Route: 041
     Dates: start: 202106
  3. TAXOL [Suspect]
     Active Substance: PACLITAXEL
     Indication: Breast cancer metastatic
     Route: 042
     Dates: start: 202106, end: 202109

REACTIONS (16)
  - Blood pressure increased [Recovered/Resolved]
  - Cerebrovascular accident [Recovered/Resolved with Sequelae]
  - Cataract [Recovered/Resolved]
  - Strabismus [Not Recovered/Not Resolved]
  - Muscle spasms [Not Recovered/Not Resolved]
  - Ill-defined disorder [Recovered/Resolved]
  - Ill-defined disorder [Recovered/Resolved]
  - Neuropathy peripheral [Not Recovered/Not Resolved]
  - Vertebral foraminal stenosis [Not Recovered/Not Resolved]
  - Scoliosis [Not Recovered/Not Resolved]
  - Spinal compression fracture [Not Recovered/Not Resolved]
  - Back disorder [Not Recovered/Not Resolved]
  - Abscess [Recovered/Resolved]
  - Urticaria [Recovered/Resolved]
  - COVID-19 [Recovered/Resolved]
  - Fall [Not Recovered/Not Resolved]

NARRATIVE: CASE EVENT DATE: 20210701
